FAERS Safety Report 9272851 (Version 1)
Quarter: 2013Q2

REPORT INFORMATION
  Report Type: Spontaneous
  Country: US (occurrence: US)
  Receive Date: 20130506
  Receipt Date: 20130506
  Transmission Date: 20140414
  Serious: No
  Sender: FDA-Public Use
  Company Number: US-ASTRAZENECA-2012SE41345

PATIENT
  Age: 74 Year
  Sex: Female

DRUGS (1)
  1. PRILOSEC OTC [Suspect]
     Route: 048
     Dates: start: 20120302, end: 20120305

REACTIONS (3)
  - Oesophageal ulcer [Not Recovered/Not Resolved]
  - Stomatitis [Not Recovered/Not Resolved]
  - Intentional drug misuse [Unknown]
